FAERS Safety Report 22613952 (Version 1)
Quarter: 2023Q2

REPORT INFORMATION
  Report Type: Spontaneous
  Country: KR (occurrence: KR)
  Receive Date: 20230619
  Receipt Date: 20230619
  Transmission Date: 20230721
  Serious: Yes (Other)
  Sender: FDA-Public Use
  Company Number: KR-BAUSCHBL-2023BNL004882

PATIENT
  Age: 74 Year
  Sex: Male

DRUGS (1)
  1. CYCLOPENTOLATE [Suspect]
     Active Substance: CYCLOPENTOLATE
     Indication: Cataract operation
     Route: 061

REACTIONS (1)
  - Delirium [Recovered/Resolved]
